FAERS Safety Report 13007475 (Version 1)
Quarter: 2016Q4

REPORT INFORMATION
  Report Type: Spontaneous
  Country: US (occurrence: US)
  Receive Date: 20161207
  Receipt Date: 20161207
  Transmission Date: 20170207
  Serious: Yes (Other)
  Sender: FDA-Public Use
  Company Number: US-GLAXOSMITHKLINE-US2016GSK178872

PATIENT
  Sex: Male

DRUGS (2)
  1. IBUPROFEN. [Suspect]
     Active Substance: IBUPROFEN
     Indication: PRODUCT USED FOR UNKNOWN INDICATION
     Dosage: UNK UNK, U
  2. SUMATRIPTAN (SUMATRIPTAN SUCCINATE) [Suspect]
     Active Substance: SUMATRIPTAN SUCCINATE
     Indication: CLUSTER HEADACHE
     Dosage: UNK UNK, U

REACTIONS (10)
  - Mental impairment [Unknown]
  - Chest discomfort [Unknown]
  - Dry eye [Unknown]
  - Muscle tightness [Unknown]
  - Sensory disturbance [Unknown]
  - Product use issue [Unknown]
  - Feeling abnormal [Unknown]
  - Off label use [Unknown]
  - Drug interaction [Unknown]
  - Dry mouth [Unknown]
